FAERS Safety Report 13682463 (Version 1)
Quarter: 2017Q2

REPORT INFORMATION
  Report Type: Spontaneous
  Country: FR (occurrence: FR)
  Receive Date: 20170623
  Receipt Date: 20170623
  Transmission Date: 20170830
  Serious: Yes (Other)
  Sender: FDA-Public Use
  Company Number: FR-BAYER-2017-118433

PATIENT
  Age: 43 Year
  Sex: Female

DRUGS (1)
  1. MIRENA [Suspect]
     Active Substance: LEVONORGESTREL
     Indication: CONTRACEPTION
     Dosage: 20 MCG/24HR, CONT
     Route: 015
     Dates: start: 20060420

REACTIONS (11)
  - Weight increased [Unknown]
  - Migraine [Unknown]
  - Back pain [Unknown]
  - Basedow^s disease [Unknown]
  - Sleep disorder [Unknown]
  - Thyroidectomy [Unknown]
  - Speech disorder [Unknown]
  - Depression [Unknown]
  - Anxiety [Unknown]
  - Amnesia [Unknown]
  - Malaise [Unknown]

NARRATIVE: CASE EVENT DATE: 200712
